FAERS Safety Report 8168862-2 (Version None)
Quarter: 2012Q1

REPORT INFORMATION
  Report Type: 
  Country: None (occurrence: None)
  Receive Date: 20120227
  Receipt Date: 20120220
  Transmission Date: 20120608
  Serious: Yes (Hospitalization)
  Sender: FDA-Public Use
  Company Number: FR-PFIZER INC-2012040275

PATIENT
  Age: 81 Year
  Sex: Female

DRUGS (4)
  1. PANTOPRAZOLE [Interacting]
     Dosage: UNK
     Dates: start: 20111117, end: 20111122
  2. METHOTREXATE SODIUM [Interacting]
     Dosage: 12.5 MG, 1X/DAY X 5 DAYS
     Route: 048
     Dates: start: 20111111, end: 20111115
  3. METHOTREXATE SODIUM [Interacting]
     Dosage: 2.5 MG, 1X/DAY X 4 DAYS
     Route: 048
     Dates: start: 20111116, end: 20111119
  4. METHOTREXATE SODIUM [Suspect]
     Indication: RHEUMATOID ARTHRITIS
     Dosage: 12.5 MG, WEEKLY

REACTIONS (4)
  - DRUG INTERACTION [None]
  - INAPPROPRIATE SCHEDULE OF DRUG ADMINISTRATION [None]
  - PANCYTOPENIA [None]
  - TOXICITY TO VARIOUS AGENTS [None]
